FAERS Safety Report 10919190 (Version 5)
Quarter: 2015Q3

REPORT INFORMATION
  Report Type: Spontaneous
  Country: US (occurrence: None)
  Receive Date: 20150312
  Receipt Date: 20150817
  Transmission Date: 20151125
  Serious: Yes (Hospitalization)
  Sender: FDA-Public Use
  Company Number: KAD201503-000442

PATIENT
  Age: 68 Year
  Sex: Male
  Weight: 108.4 kg

DRUGS (18)
  1. CALCIUM (CALCIUM) [Concomitant]
     Active Substance: CALCIUM
  2. AMLODIPINE (AMLODIPINIE BESILATE) [Concomitant]
  3. TYLENOL [Concomitant]
     Active Substance: ACETAMINOPHEN
  4. LACTULOSE (LACTULOSE) [Concomitant]
     Active Substance: LACTULOSE
  5. XIFAXAN [Concomitant]
     Active Substance: RIFAXIMIN
  6. FUROSEMIDE (FUROSEMIDE) [Concomitant]
     Active Substance: FUROSEMIDE
  7. VITAMIN A (RETINOL) [Concomitant]
     Active Substance: RETINOL
  8. HUMULIN-R (INSULIN HUMAN) [Concomitant]
  9. RIBAVIRIN. [Suspect]
     Active Substance: RIBAVIRIN
     Indication: HEPATITIS C
     Dosage: 600 MG TWICE DAILY; 1200 MG DAILY, ORAL
     Route: 048
     Dates: start: 20150123, end: 20150225
  10. DASABUVIR [Suspect]
     Active Substance: DASABUVIR
     Indication: HEPATITIS C
     Dosage: TABLET, 1 TABLET TWICE DAILY; 2 TABLET DAILY, ORAL
     Route: 048
     Dates: start: 20150123
  11. SPIRONOLACTONE (SPIRONOLACTONE) [Concomitant]
     Active Substance: SPIRONOLACTONE
  12. VITAMIN D (ERGOCALCIFEROL) [Concomitant]
     Active Substance: ERGOCALCIFEROL
  13. SODIUM CHLORIDE (SODIUM CHLORIDE) [Concomitant]
     Active Substance: SODIUM CHLORIDE
  14. LATINEX (LATINEX) [Concomitant]
  15. ABT-450 /RITONAVIR/ABT-267 (OMBITASVIR, PARITAPREVIR, RITONAVIR) [Suspect]
     Active Substance: OMBITASVIR\PARITAPREVIR\RITONAVIR
     Indication: HEPATITIS C
     Dosage: TABLET, 150/100/25 MG ONCE DAILY, ORAL??
     Route: 048
     Dates: start: 20150123
  16. LISINOPRIL (LISINOPRIL) [Concomitant]
     Active Substance: LISINOPRIL
  17. VANCOMYCIN (VANCOMYCIN HYDROCHLORIDE) [Concomitant]
     Active Substance: VANCOMYCIN
  18. ZOSYN (PIP/TAZO) (PIPERACILLIN SODIUM, TAZOBACTAM SODIUM) [Concomitant]

REACTIONS (15)
  - Metabolic encephalopathy [None]
  - Toxicity to various agents [None]
  - Hyperbilirubinaemia [None]
  - Blood urea increased [None]
  - Muscle spasms [None]
  - Liver disorder [None]
  - Confusional state [None]
  - Pancytopenia [None]
  - Treatment noncompliance [None]
  - Aspartate aminotransferase increased [None]
  - Hyperglycaemia [None]
  - Condition aggravated [None]
  - Anaemia [None]
  - International normalised ratio increased [None]
  - Disorientation [None]

NARRATIVE: CASE EVENT DATE: 20150224
